FAERS Safety Report 16177115 (Version 2)
Quarter: 2019Q2

REPORT INFORMATION
  Report Type: Spontaneous
  Country: US (occurrence: US)
  Receive Date: 20190410
  Receipt Date: 20190427
  Transmission Date: 20190711
  Serious: No
  Sender: FDA-Public Use
  Company Number: US-TEVA-2019-US-1025111

PATIENT
  Sex: Female

DRUGS (1)
  1. AZITHROMYCIN TABLET [Suspect]
     Active Substance: AZITHROMYCIN
     Indication: COUGH
     Dosage: WHITE OVAL TABLETS MARKED PLIVA 787
     Dates: start: 201812

REACTIONS (3)
  - Product dose omission [Unknown]
  - Paraesthesia [Unknown]
  - Heart rate increased [Unknown]

NARRATIVE: CASE EVENT DATE: 201812
